FAERS Safety Report 9082088 (Version 1)
Quarter: 2013Q1

REPORT INFORMATION
  Report Type: Report from Study
  Country: US (occurrence: US)
  Receive Date: 20130130
  Receipt Date: 20130130
  Transmission Date: 20140127
  Serious: No
  Sender: FDA-Public Use
  Company Number: US-ABBOTT-12P-163-0973524-00

PATIENT
  Age: 63 Year
  Sex: Male

DRUGS (4)
  1. HUMIRA 40 MG/0.8 ML PEN [Suspect]
     Indication: PSORIASIS
  2. LEVOTHYROXINE [Concomitant]
     Indication: THYROID DISORDER
     Dosage: 1 PILL DAILY
  3. LOSARTAN [Concomitant]
     Indication: BLOOD PRESSURE
     Dosage: 1 PILL DAILY
  4. ATENOLOL [Concomitant]
     Indication: BLOOD PRESSURE
     Dosage: 1 PILL DAILY

REACTIONS (1)
  - Urinary tract infection [Not Recovered/Not Resolved]
